FAERS Safety Report 11233937 (Version 1)
Quarter: 2015Q3

REPORT INFORMATION
  Report Type: Report from Study
  Country: US (occurrence: US)
  Receive Date: 20150702
  Receipt Date: 20150702
  Transmission Date: 20151125
  Serious: Yes (Other)
  Sender: FDA-Public Use
  Company Number: US-BRISTOL-MYERS SQUIBB COMPANY-16932337

PATIENT
  Age: 43 Year
  Sex: Male
  Weight: 64.2 kg

DRUGS (1)
  1. IPILIMUMAB [Suspect]
     Active Substance: IPILIMUMAB
     Indication: MALIGNANT MELANOMA
     Dosage: LAST DOSE ON 20AUG2012;766 MG TOTAL
     Route: 042
     Dates: start: 20120730, end: 20120820

REACTIONS (2)
  - Diarrhoea [Not Recovered/Not Resolved]
  - Lipase increased [Unknown]

NARRATIVE: CASE EVENT DATE: 20120829
